FAERS Safety Report 12749849 (Version 1)
Quarter: 2016Q3

REPORT INFORMATION
  Report Type: Spontaneous
  Country: JP (occurrence: JP)
  Receive Date: 20160916
  Receipt Date: 20160916
  Transmission Date: 20161109
  Serious: Yes (Other)
  Sender: FDA-Public Use
  Company Number: JP-GLAXOSMITHKLINE-JP2016JPN132671

PATIENT
  Age: 75 Year
  Sex: Female

DRUGS (7)
  1. LOXONIN [Concomitant]
     Active Substance: LOXOPROFEN SODIUM
     Dosage: UNK
  2. ZOVIRAX [Suspect]
     Active Substance: ACYCLOVIR
     Indication: MYELITIS
     Dosage: UNK
     Route: 065
  3. MEDICON (DEXTROMETHORPHAN HYDROBROMIDE HYDRATE) [Concomitant]
     Dosage: UNK
  4. TRYPTANOL [Concomitant]
     Active Substance: AMITRIPTYLINE
     Dosage: 30 MG, 1D
  5. TRYPTANOL [Concomitant]
     Active Substance: AMITRIPTYLINE
     Dosage: 90 MG, 1D
  6. AMOXAN [Concomitant]
     Active Substance: AMOXAPINE
     Dosage: 25 MG, 1D
  7. DEPAKENE [Concomitant]
     Active Substance: VALPROIC ACID
     Dosage: UNK UNK, 1D

REACTIONS (8)
  - Disseminated intravascular coagulation [Unknown]
  - Haemorrhage subcutaneous [Unknown]
  - Platelet count decreased [Unknown]
  - Depressed level of consciousness [Recovered/Resolved]
  - Pain [Unknown]
  - Neuroleptic malignant syndrome [Unknown]
  - Pulmonary infarction [Unknown]
  - Vasculitis [Unknown]
